FAERS Safety Report 7224338-8 (Version None)
Quarter: 2011Q1

REPORT INFORMATION
  Report Type: 
  Country: None (occurrence: None)
  Receive Date: 20110113
  Receipt Date: 20110112
  Transmission Date: 20110831
  Serious: Yes (Death, Hospitalization, Other)
  Sender: FDA-Public Use
  Company Number: IT-BRISTOL-MYERS SQUIBB COMPANY-15481849

PATIENT
  Age: 65 Year
  Sex: Male

DRUGS (4)
  1. BISOPROLOL FUMARATE [Concomitant]
  2. COUMADIN [Suspect]
     Indication: PROPHYLAXIS
     Route: 048
     Dates: start: 20040402, end: 20101206
  3. FUROSEMIDE [Concomitant]
  4. CASODEX [Concomitant]

REACTIONS (5)
  - ISCHAEMIC STROKE [None]
  - ANAL HAEMORRHAGE [None]
  - PROSTATE CANCER [None]
  - CEREBROVASCULAR ACCIDENT [None]
  - ACUTE RESPIRATORY FAILURE [None]
